FAERS Safety Report 5480732-7 (Version None)
Quarter: 2007Q4

REPORT INFORMATION
  Report Type: 
  Country: None (occurrence: None)
  Receive Date: 20071003
  Receipt Date: 20070920
  Transmission Date: 20080405
  Serious: Yes (Hospitalization)
  Sender: FDA-Public Use
  Company Number: 2007PV033463

PATIENT
  Age: 14 Year
  Sex: Female

DRUGS (4)
  1. SYMLIN [Suspect]
     Indication: TYPE 1 DIABETES MELLITUS
     Dosage: 6 MCG;BID;SC, 30 MCG, SC
     Route: 058
     Dates: start: 20060601, end: 20070601
  2. SYMLIN [Suspect]
     Indication: TYPE 1 DIABETES MELLITUS
     Dosage: 6 MCG;BID;SC, 30 MCG, SC
     Route: 058
     Dates: start: 20070919
  3. LANTUS [Concomitant]
  4. HUMALOG [Concomitant]

REACTIONS (6)
  - ABDOMINAL PAIN [None]
  - BLOOD GLUCOSE DECREASED [None]
  - BLOOD GLUCOSE INCREASED [None]
  - HEADACHE [None]
  - INCORRECT DOSE ADMINISTERED [None]
  - NAUSEA [None]
